FAERS Safety Report 13671072 (Version 1)
Quarter: 2017Q2

REPORT INFORMATION
  Report Type: Spontaneous
  Country: US (occurrence: US)
  Receive Date: 20170620
  Receipt Date: 20170620
  Transmission Date: 20170830
  Serious: No
  Sender: FDA-Public Use
  Company Number: US-ROCHE-1308847

PATIENT
  Sex: Female

DRUGS (9)
  1. XELODA [Suspect]
     Active Substance: CAPECITABINE
     Route: 048
     Dates: start: 20131107
  2. PROZAC [Concomitant]
     Active Substance: FLUOXETINE HYDROCHLORIDE
  3. XELODA [Suspect]
     Active Substance: CAPECITABINE
     Indication: COLON CANCER
     Dosage: 14 DAYS ON, 7 DAYS OFF
     Route: 048
     Dates: start: 20131106
  4. LIPITOR [Concomitant]
     Active Substance: ATORVASTATIN CALCIUM
  5. ZANAFLEX [Concomitant]
     Active Substance: TIZANIDINE HYDROCHLORIDE
  6. XELODA [Suspect]
     Active Substance: CAPECITABINE
     Dosage: 14 DAYS ON FOLLOWED BY 7 DAYS OFF
     Route: 048
     Dates: start: 20131107
  7. AMLODIPINE [Concomitant]
     Active Substance: AMLODIPINE BESYLATE
  8. FISH OIL [Concomitant]
     Active Substance: FISH OIL
  9. ZANTAC [Concomitant]
     Active Substance: RANITIDINE HYDROCHLORIDE

REACTIONS (2)
  - Diarrhoea [Recovering/Resolving]
  - Vomiting [Recovered/Resolved]
